FAERS Safety Report 8496336 (Version 2)
Quarter: 2012Q4

REPORT INFORMATION
  Report Type: 
  Country: US (occurrence: US)
  Receive Date: 20120405
  Receipt Date: 20120828
  Transmission Date: 20130627
  Serious: Yes (Hospitalization, Other)
  Sender: FDA-Public Use
  Company Number: US-ELI_LILLY_AND_COMPANY-US201203007431

PATIENT
  Age: 75 Year
  Sex: Male

DRUGS (12)
  1. CYMBALTA [Suspect]
     Dosage: UNK
     Dates: end: 20120206
  2. SAXAGLIPTIN [Concomitant]
     Indication: TYPE 2 DIABETES MELLITUS
     Dosage: UNK
     Dates: start: 20110303, end: 20120131
  3. PLACEBO [Concomitant]
     Indication: TYPE 2 DIABETES MELLITUS
     Dosage: UNK
     Dates: start: 20110303, end: 20120131
  4. LEVEMIR [Concomitant]
     Indication: TYPE 2 DIABETES MELLITUS
     Dosage: 24 IU, UNK
  5. LEVEMIR [Concomitant]
     Dosage: 22 IU, UNK
     Dates: start: 20110306
  6. NOVORAPID [Concomitant]
     Indication: TYPE 2 DIABETES MELLITUS
     Dosage: 4 IU, UNK
  7. NOVORAPID [Concomitant]
     Dosage: 6 IU, UNK
     Dates: end: 20110818
  8. ASPIRIN [Concomitant]
  9. VITAMIN B12 [Concomitant]
     Dosage: UNK
     Dates: start: 20111115
  10. CARVEDILOL [Concomitant]
     Dosage: UNK
     Dates: start: 20120117
  11. MONOLONG [Concomitant]
     Dosage: UNK
     Dates: start: 20120201
  12. PRAVASTATIN [Concomitant]
     Dosage: UNK
     Dates: end: 20120115

REACTIONS (8)
  - Cardiac failure congestive [Recovered/Resolved]
  - Pneumonia [Recovered/Resolved]
  - Aspartate aminotransferase increased [Recovering/Resolving]
  - Alanine aminotransferase increased [Recovering/Resolving]
  - Blood bilirubin increased [Recovering/Resolving]
  - Gamma-glutamyltransferase increased [Recovering/Resolving]
  - Blood alkaline phosphatase increased [Recovering/Resolving]
  - Blood creatinine abnormal [Recovering/Resolving]
